FAERS Safety Report 23717599 (Version 1)
Quarter: 2024Q2

REPORT INFORMATION
  Report Type: Spontaneous
  Country: IT (occurrence: IT)
  Receive Date: 20240408
  Receipt Date: 20240408
  Transmission Date: 20240716
  Serious: Yes (Hospitalization)
  Sender: FDA-Public Use
  Company Number: None

PATIENT
  Age: 20 Year
  Sex: Male

DRUGS (2)
  1. QUETIAPINE [Suspect]
     Active Substance: QUETIAPINE
     Dates: start: 20240303, end: 20240303
  2. LYRICA [Suspect]
     Active Substance: PREGABALIN
     Dates: start: 20240303, end: 20240303

REACTIONS (3)
  - Somnolence [Not Recovered/Not Resolved]
  - Suicide attempt [Not Recovered/Not Resolved]
  - Intentional overdose [Not Recovered/Not Resolved]

NARRATIVE: CASE EVENT DATE: 20240303
